FAERS Safety Report 10246121 (Version 1)
Quarter: 2014Q2

REPORT INFORMATION
  Report Type: Spontaneous
  Country: US (occurrence: US)
  Receive Date: 20140619
  Receipt Date: 20140619
  Transmission Date: 20141212
  Serious: No
  Sender: FDA-Public Use
  Company Number: US-BAYER-2014-089608

PATIENT
  Sex: Female

DRUGS (1)
  1. BETASERON [Suspect]
     Dosage: UNK
     Dates: start: 1997

REACTIONS (2)
  - Unevaluable event [None]
  - Drug intolerance [None]
